FAERS Safety Report 10525092 (Version 2)
Quarter: 2014Q4

REPORT INFORMATION
  Report Type: Spontaneous
  Country: AT (occurrence: AT)
  Receive Date: 20141017
  Receipt Date: 20141209
  Transmission Date: 20150528
  Serious: Yes (Hospitalization)
  Sender: FDA-Public Use
  Company Number: AT-ASTRAZENECA-2014SE77387

PATIENT
  Age: 47 Year
  Sex: Male

DRUGS (8)
  1. SUBSTITOL (NON AZ PRODUCT) [Suspect]
     Active Substance: MORPHINE SULFATE
     Route: 048
     Dates: start: 2008
  2. CIPRALEX [Suspect]
     Active Substance: ESCITALOPRAM OXALATE
     Dosage: 10-30 MG/DAILY
     Route: 048
     Dates: start: 20140531
  3. SEROQUEL XR [Suspect]
     Active Substance: QUETIAPINE FUMARATE
     Dosage: 400-800 MG DAILY
     Route: 048
     Dates: start: 20140531
  4. ABILIFY [Suspect]
     Active Substance: ARIPIPRAZOLE
     Dosage: 5
     Route: 048
     Dates: start: 20140625, end: 20140629
  5. AKINETON [Suspect]
     Active Substance: BIPERIDEN HYDROCHLORIDE
     Route: 048
     Dates: start: 20140630, end: 20140701
  6. ABILIFY [Suspect]
     Active Substance: ARIPIPRAZOLE
     Dosage: 10
     Route: 048
     Dates: start: 20140630, end: 20140707
  7. PRAXITEN [Suspect]
     Active Substance: OXAZEPAM
     Dosage: 150 MAX 300
     Route: 048
     Dates: start: 2013, end: 20140729
  8. TRITTICO [Concomitant]
     Active Substance: TRAZODONE HYDROCHLORIDE
     Dosage: 150
     Route: 048
     Dates: start: 20140616, end: 20140718

REACTIONS (9)
  - Insomnia [Unknown]
  - Confusional state [Unknown]
  - Attention deficit/hyperactivity disorder [Unknown]
  - Tremor [Recovered/Resolved]
  - Psychomotor skills impaired [Unknown]
  - Gait disturbance [Unknown]
  - Restlessness [Unknown]
  - Delirium [Recovered/Resolved]
  - Disorientation [Unknown]

NARRATIVE: CASE EVENT DATE: 20140625
